FAERS Safety Report 21605479 (Version 1)
Quarter: 2022Q4

REPORT INFORMATION
  Report Type: Spontaneous
  Country: KR (occurrence: KR)
  Receive Date: 20221116
  Receipt Date: 20221116
  Transmission Date: 20230112
  Serious: Yes (Other)
  Sender: FDA-Public Use
  Company Number: KR-BAYER-2022P021168

PATIENT
  Age: 59 Year
  Sex: Female

DRUGS (1)
  1. REGORAFENIB [Suspect]
     Active Substance: REGORAFENIB
     Indication: Colorectal cancer metastatic
     Dosage: 160 MG/DAY
     Route: 048

REACTIONS (2)
  - Arteriosclerosis coronary artery [None]
  - Chest pain [None]
